FAERS Safety Report 14603868 (Version 3)
Quarter: 2020Q1

REPORT INFORMATION
  Report Type: Report from Study
  Country: US (occurrence: US)
  Receive Date: 20180306
  Receipt Date: 20200108
  Transmission Date: 20200409
  Serious: Yes (Death, Hospitalization)
  Sender: FDA-Public Use
  Company Number: US-PFIZER INC-2018087948

PATIENT
  Age: 66 Year
  Sex: Male
  Weight: 54.4 kg

DRUGS (7)
  1. BRENTUXIMAB VEDOTIN RECOMBINANT [Suspect]
     Active Substance: BRENTUXIMAB VEDOTIN
     Dosage: 1.2 MG/KG, ON DAYS 1 AND 15
     Route: 042
     Dates: start: 20170301, end: 20170301
  2. AZITHROMYCIN ANHYDROUS. [Suspect]
     Active Substance: AZITHROMYCIN ANHYDROUS
     Indication: INFECTION PROPHYLAXIS
     Dosage: 1200 MG, CYCLIC
  3. MEPRON [Suspect]
     Active Substance: ATOVAQUONE
     Indication: PROPHYLAXIS
     Dosage: 1500 MG
  4. DOXORUBICIN HCL [Suspect]
     Active Substance: DOXORUBICIN HYDROCHLORIDE
     Dosage: 25 MG/M2, ON DAYS 1 AND 15
     Route: 042
     Dates: start: 20170301, end: 20170301
  5. VINBLASTINE [Suspect]
     Active Substance: VINBLASTINE
     Dosage: 6 MG/M2, ON DAYS 1 AND 15
     Route: 042
     Dates: start: 20170301, end: 20170301
  6. TRIUMEQ [Concomitant]
     Active Substance: ABACAVIR SULFATE\DOLUTEGRAVIR SODIUM\LAMIVUDINE
     Dosage: UNK
  7. DACARBAZINE. [Suspect]
     Active Substance: DACARBAZINE
     Dosage: 375 MG/M2, ON DAYS 1 AND 15
     Route: 042
     Dates: start: 20170301, end: 20170301

REACTIONS (8)
  - Depressed level of consciousness [Not Recovered/Not Resolved]
  - Platelet count decreased [Recovered/Resolved]
  - Haemorrhage intracranial [Not Recovered/Not Resolved]
  - Septic shock [Not Recovered/Not Resolved]
  - Diarrhoea [Not Recovered/Not Resolved]
  - Respiratory failure [Fatal]
  - Neutrophil count decreased [Recovered/Resolved]
  - White blood cell count decreased [Recovered/Resolved]

NARRATIVE: CASE EVENT DATE: 20170307
